FAERS Safety Report 8770338 (Version 1)
Quarter: 2012Q4

REPORT INFORMATION
  Report Type: Report from Study
  Country: MT (occurrence: MT)
  Receive Date: 20120906
  Receipt Date: 20120906
  Transmission Date: 20130627
  Serious: Yes (Other)
  Sender: FDA-Public Use
  Company Number: MT-BAYER-2012-090397

PATIENT
  Age: 45 Year
  Sex: Female

DRUGS (1)
  1. LEVONORGESTREL [Suspect]
     Indication: MENORRHAGIA
     Dosage: 20 mcg/24hr, CONT
     Route: 015
     Dates: start: 20050402

REACTIONS (1)
  - Uterine leiomyoma [None]
